FAERS Safety Report 9058365 (Version 1)
Quarter: 2013Q1

REPORT INFORMATION
  Report Type: Spontaneous
  Country: US (occurrence: US)
  Receive Date: 20130211
  Receipt Date: 20130211
  Transmission Date: 20140127
  Serious: Yes (Life-Threatening, Hospitalization)
  Sender: FDA-Public Use
  Company Number: US-BAYER-2013-016423

PATIENT
  Age: 23 Year
  Sex: Female
  Weight: 65.76 kg

DRUGS (8)
  1. YAZ [Suspect]
  2. YASMIN [Suspect]
  3. OCELLA [Suspect]
  4. GIANVI [Suspect]
  5. NORCO [Concomitant]
     Indication: PAIN
  6. DILAUDID [Concomitant]
  7. ORAL CONTRACEPTIVE NOS [Concomitant]
  8. ACZONE [Concomitant]
     Dosage: 5 %, UNK
     Dates: start: 20120110

REACTIONS (3)
  - Pulmonary embolism [None]
  - Chest pain [None]
  - Fear [None]
